FAERS Safety Report 12622968 (Version 1)
Quarter: 2016Q3

REPORT INFORMATION
  Report Type: Spontaneous
  Country: US (occurrence: US)
  Receive Date: 20160804
  Receipt Date: 20160804
  Transmission Date: 20161109
  Serious: Yes (Hospitalization)
  Sender: FDA-Public Use
  Company Number: PHHY2016US105620

PATIENT
  Age: 61 Year
  Sex: Female

DRUGS (16)
  1. OXALIPLATIN. [Concomitant]
     Active Substance: OXALIPLATIN
     Indication: PANCREATIC CARCINOMA
     Dosage: 60 MG/M2, UNK OVER 2 HOURS
     Route: 042
  2. OXALIPLATIN. [Concomitant]
     Active Substance: OXALIPLATIN
     Indication: METASTASES TO LUNG
  3. 5 FLUORO URACIL [Concomitant]
     Active Substance: FLUOROURACIL
     Indication: METASTASES TO LIVER
  4. LORAZEPAM. [Interacting]
     Active Substance: LORAZEPAM
     Indication: NAUSEA
     Dosage: 1 MG, UNK
     Route: 042
  5. 5 FLUORO URACIL [Concomitant]
     Active Substance: FLUOROURACIL
     Indication: METASTASES TO LYMPH NODES
  6. FOLINIC ACID [Concomitant]
     Active Substance: LEUCOVORIN
     Indication: METASTASES TO LYMPH NODES
  7. FOLINIC ACID [Concomitant]
     Active Substance: LEUCOVORIN
     Indication: PANCREATIC CARCINOMA
     Route: 065
  8. FOLINIC ACID [Concomitant]
     Active Substance: LEUCOVORIN
     Indication: METASTASES TO LUNG
  9. OLANZAPINE. [Suspect]
     Active Substance: OLANZAPINE
     Indication: VOMITING
     Dosage: 10 MG, QD
     Route: 048
  10. OLANZAPINE. [Interacting]
     Active Substance: OLANZAPINE
     Indication: NAUSEA
  11. LORAZEPAM. [Interacting]
     Active Substance: LORAZEPAM
     Indication: VOMITING
     Dosage: 1 MG,2-3 TIMES DAILY FOR SEVERAL MONTHS
     Route: 048
  12. 5 FLUORO URACIL [Concomitant]
     Active Substance: FLUOROURACIL
     Indication: PANCREATIC CARCINOMA
     Dosage: 2000 MG/M2, UNK OVER 46 HOURS
     Route: 042
  13. 5 FLUORO URACIL [Concomitant]
     Active Substance: FLUOROURACIL
     Indication: METASTASES TO LUNG
  14. FOLINIC ACID [Concomitant]
     Active Substance: LEUCOVORIN
     Indication: METASTASES TO LIVER
  15. OXALIPLATIN. [Concomitant]
     Active Substance: OXALIPLATIN
     Indication: METASTASES TO LIVER
  16. OXALIPLATIN. [Concomitant]
     Active Substance: OXALIPLATIN
     Indication: METASTASES TO LYMPH NODES

REACTIONS (7)
  - Hypotension [Recovered/Resolved]
  - Respiratory depression [Recovered/Resolved]
  - Delirium [Recovered/Resolved]
  - Drug interaction [Unknown]
  - Toxicity to various agents [Recovered/Resolved]
  - Unresponsive to stimuli [Recovered/Resolved]
  - Drug ineffective [Unknown]
